FAERS Safety Report 19975697 (Version 1)
Quarter: 2021Q4

REPORT INFORMATION
  Report Type: Other
  Country: DE (occurrence: DE)
  Receive Date: 20211021
  Receipt Date: 20211021
  Transmission Date: 20220303
  Serious: No
  Sender: FDA-Public Use
  Company Number: DE-LUPIN PHARMACEUTICALS INC.-2021-19370

PATIENT
  Age: 31 Year
  Sex: Female
  Weight: 62 kg

DRUGS (2)
  1. LEVETIRACETAM [Suspect]
     Active Substance: LEVETIRACETAM
     Indication: Epilepsy
     Dosage: 1000 MG PER DAY (IN 2 SEPARATED DOSES)
     Route: 048
     Dates: start: 20191015, end: 20200313
  2. FOLIC ACID [Suspect]
     Active Substance: FOLIC ACID
     Indication: Prophylaxis of neural tube defect
     Dosage: 5 MG PER DAY
     Route: 048
     Dates: start: 20191015, end: 20200625

REACTIONS (1)
  - Exposure during pregnancy [Unknown]
